FAERS Safety Report 10646403 (Version 2)
Quarter: 2015Q1

REPORT INFORMATION
  Report Type: Spontaneous
  Country: IT (occurrence: IT)
  Receive Date: 20141211
  Receipt Date: 20150223
  Transmission Date: 20150720
  Serious: Yes (Life-Threatening)
  Sender: FDA-Public Use
  Company Number: IT-PFIZER INC-2014338700

PATIENT
  Age: 42 Year
  Sex: Female
  Weight: 52 kg

DRUGS (6)
  1. CEFTRIAXON [Suspect]
     Active Substance: CEFTRIAXONE
     Indication: MENINGITIS PNEUMOCOCCAL
     Dosage: 4 G, DAILY, 1 GR
     Route: 042
     Dates: start: 20141026, end: 20141118
  2. DIAZEPAM SANDOZ [Concomitant]
     Active Substance: DIAZEPAM
     Indication: BACK PAIN
     Dosage: 5 MG/ML, UNK, 20DROPS
     Route: 048
     Dates: start: 20141110, end: 20141128
  3. AMLODIPINE [Concomitant]
     Active Substance: AMLODIPINE BESYLATE
     Dosage: UNK
     Route: 048
  4. PANTOPRAZOLE [Suspect]
     Active Substance: PANTOPRAZOLE SODIUM
     Indication: GASTRITIS PROPHYLAXIS
     Dosage: 40 MG, DAILY
     Route: 048
     Dates: start: 20141026, end: 20141118
  5. TARGOSID [Suspect]
     Active Substance: TEICOPLANIN
     Indication: PNEUMONIA
     Dosage: 30 MG, DAILY, 200MG/3ML
     Route: 042
     Dates: start: 20141106, end: 20141118
  6. OLMESARTAN MEDOXOMIL. [Concomitant]
     Active Substance: OLMESARTAN MEDOXOMIL
     Indication: HYPERTENSION
     Dosage: UNK
     Route: 048

REACTIONS (1)
  - Neutropenia [Recovered/Resolved]

NARRATIVE: CASE EVENT DATE: 20141118
